FAERS Safety Report 15490959 (Version 2)
Quarter: 2018Q4

REPORT INFORMATION
  Report Type: Spontaneous
  Country: FR (occurrence: FR)
  Receive Date: 20181012
  Receipt Date: 20181023
  Transmission Date: 20190205
  Serious: Yes (Life-Threatening, Other)
  Sender: FDA-Public Use
  Company Number: FR-BRISTOL-MYERS SQUIBB COMPANY-BMS-2018-091495

PATIENT
  Age: 71 Year
  Sex: Male

DRUGS (3)
  1. KARDEGIC [Interacting]
     Active Substance: ASPIRIN DL-LYSINE
     Indication: PROPHYLAXIS
     Dosage: 75 MG, DRUG INTERVAL 1DAY
     Route: 048
     Dates: end: 20180817
  2. COUMADINE [Suspect]
     Active Substance: WARFARIN SODIUM
     Indication: PROPHYLAXIS
     Dosage: 1 DF, DRUG INTERVAL 1DAY
     Route: 048
     Dates: start: 20180815, end: 20180817
  3. LOVENOX [Interacting]
     Active Substance: ENOXAPARIN SODIUM
     Indication: PROPHYLAXIS
     Dosage: 1.6 ML, DRUG INTERVAL 1DAY
     Route: 058
     Dates: start: 20180808, end: 20180817

REACTIONS (2)
  - Labelled drug-drug interaction medication error [Unknown]
  - Cerebral haematoma [Recovering/Resolving]

NARRATIVE: CASE EVENT DATE: 20180817
